FAERS Safety Report 11230666 (Version 1)
Quarter: 2015Q2

REPORT INFORMATION
  Report Type: Spontaneous
  Country: US (occurrence: None)
  Receive Date: 20150629
  Receipt Date: 20150629
  Transmission Date: 20150821
  Serious: Yes (Hospitalization, Other)
  Sender: FDA-Public Use
  Company Number: 2015TASUS000796

PATIENT
  Age: 64 Year
  Sex: Female

DRUGS (13)
  1. ARTIFICIAL TEARS (HYPROMELLOSE) [Concomitant]
  2. IMODIUM A-D (LOPERAMIDE HYDROCHLORIDE) [Concomitant]
  3. NYSTATIN. [Concomitant]
     Active Substance: NYSTATIN
  4. FISH OIL (COD LIVER OIL) [Concomitant]
  5. MIRAPEX [Concomitant]
     Active Substance: PRAMIPEXOLE DIHYDROCHLORIDE
  6. HETLIOZ [Suspect]
     Active Substance: TASIMELTEON
     Indication: CIRCADIAN RHYTHM SLEEP DISORDER
     Dates: start: 20150417
  7. BENADRYL [Concomitant]
     Active Substance: DIPHENHYDRAMINE HYDROCHLORIDE
  8. CALCIUM (CALCIUM CARBONATE) [Concomitant]
  9. IRON W/ VITAMIN C [Concomitant]
  10. MULTIVITAMIN (ASORBIC ACID, CALCIUM PANTOTHENATE, CYANOCOBALAMIN, NICOTINAMIDE, PYRIDOXINE HYDROCHLORIDE, RIBOFLAVIN, THIAMINE MONONITRATE, TOCOPHERYL ACETATE) [Concomitant]
  11. LEXAPRO [Concomitant]
     Active Substance: ESCITALOPRAM OXALATE
  12. COUGH SYRUP (ANTIMONY POTASSIUM TARTRATE, PAPAVER SOMNIFERUM TINCTURE, TERPIN HYDRATE) [Concomitant]
  13. MAGNESIUM [Concomitant]
     Active Substance: MAGNESIUM

REACTIONS (1)
  - Colon cancer [None]
